FAERS Safety Report 4767181-1 (Version None)
Quarter: 2005Q3

REPORT INFORMATION
  Report Type: 
  Country: None (occurrence: None)
  Receive Date: 20050909
  Receipt Date: 20050909
  Transmission Date: 20060218
  Serious: Yes (Hospitalization)
  Sender: FDA-Public Use
  Company Number: None

PATIENT
  Age: 62 Year
  Sex: Male
  Weight: 118.3888 kg

DRUGS (1)
  1. WARFARIN 4MG [Suspect]
     Indication: ATRIAL FIBRILLATION
     Dosage: 2MG A/W 4 MG QOD DAILY PO
     Route: 048
     Dates: start: 20050820, end: 20050908

REACTIONS (4)
  - DRUG TOXICITY [None]
  - GASTROINTESTINAL HAEMORRHAGE [None]
  - HAEMATURIA [None]
  - MELAENA [None]
